FAERS Safety Report 17831568 (Version 1)
Quarter: 2020Q2

REPORT INFORMATION
  Report Type: Spontaneous
  Country: FR (occurrence: FR)
  Receive Date: 20200527
  Receipt Date: 20200527
  Transmission Date: 20200714
  Serious: Yes (Hospitalization)
  Sender: FDA-Public Use
  Company Number: FR-ANIPHARMA-2020-FR-000149

PATIENT
  Age: 57 Year
  Sex: Male

DRUGS (11)
  1. CANDESARTAN CILEXETIL. [Suspect]
     Active Substance: CANDESARTAN CILEXETIL
     Indication: PREMEDICATION
     Dosage: 8 MG UNK
     Route: 048
     Dates: start: 20200224
  2. CACIT VITAMINE D3 [Suspect]
     Active Substance: CALCIUM CARBONATE\CHOLECALCIFEROL
     Dosage: UNKNOWN DOSE EVERY DAY
     Route: 048
     Dates: start: 201903
  3. EMEND [Suspect]
     Active Substance: APREPITANT
     Dosage: UNK
     Route: 048
     Dates: start: 202002
  4. XGEVA [Concomitant]
     Active Substance: DENOSUMAB
     Dosage: 120 MG MONTH
     Route: 058
     Dates: start: 201903
  5. ELIGARD [Suspect]
     Active Substance: LEUPROLIDE ACETATE
     Dosage: UNKNOWN DOSE EVERY SIX MONTHS
     Route: 058
     Dates: start: 201808
  6. PEGFILGRASTIM [Suspect]
     Active Substance: PEGFILGRASTIM
     Dosage: 6 MG UNK
     Route: 058
     Dates: start: 202002
  7. POLARAMINE [Suspect]
     Active Substance: DEXCHLORPHENIRAMINE MALEATE
     Dosage: 5 MG UNK
     Route: 042
     Dates: start: 20200224
  8. AZANTAC [Suspect]
     Active Substance: RANITIDINE HYDROCHLORIDE
     Dosage: 50 MG UNK
     Route: 042
     Dates: start: 20200224
  9. JEVTANA [Suspect]
     Active Substance: CABAZITAXEL
     Dosage: 60 MG UNK
     Route: 048
     Dates: start: 20200224
  10. SOLUPRED (PREDNISOLONE SODIUM SULFOBENZOATE) [Suspect]
     Active Substance: PREDNISOLONE SODIUM METAZOATE
     Dosage: 10 MG QD
     Route: 048
     Dates: start: 201903
  11. DEXAMETHASONE. [Suspect]
     Active Substance: DEXAMETHASONE
     Dosage: 8 MG UNK
     Route: 042
     Dates: start: 20200224

REACTIONS (1)
  - Pulmonary embolism [Recovering/Resolving]

NARRATIVE: CASE EVENT DATE: 20200417
